FAERS Safety Report 5921533-2 (Version None)
Quarter: 2008Q3

REPORT INFORMATION
  Report Type: 
  Country: None (occurrence: None)
  Receive Date: 20080909
  Receipt Date: 20070928
  Transmission Date: 20090109
  Serious: Yes (Hospitalization)
  Sender: FDA-Public Use
  Company Number: 163-20785-07081922

PATIENT
  Age: 60 Year
  Sex: Female
  Weight: 67 kg

DRUGS (28)
  1. THALOMID [Suspect]
     Indication: MULTIPLE MYELOMA
     Dosage: 200 MG, ORAL
     Route: 048
     Dates: start: 20060509, end: 20070821
  2. DEXAMETHASONE [Suspect]
     Indication: MULTIPLE MYELOMA
     Dosage: ON DAYS 1-4, AND 8 - 11 EVERY 28 DAYS
     Dates: start: 20060509, end: 20070824
  3. VELCADE [Suspect]
     Indication: MULTIPLE MYELOMA
     Dosage: 1 MG/M2, INTRAVENOUS
     Route: 042
     Dates: start: 20060506, end: 20070821
  4. ACYCLOVIR (ACICLOVIR) (TABLETS) [Concomitant]
  5. CLONAZEPAM [Concomitant]
  6. OXYCODONE HCL [Concomitant]
  7. MULTIVITAMINS (MULTIVITAMINS) (TABLETS) [Concomitant]
  8. ALBUTEROL [Concomitant]
  9. DILAUDID [Concomitant]
  10. LEUCOVORIN CALCIUM (CALCIUM FOLINATE) (TABLETS) [Concomitant]
  11. FOLIC ACID (FOLIC ACID) (TABLETS) [Concomitant]
  12. K-TAB (POTASSIUM CHLORIDE) (TABLETS) [Concomitant]
  13. CELEXA [Concomitant]
  14. CLARITIN REDITABS (LORATADINE) (TABLETS) [Concomitant]
  15. MAGNESIUM (MAGNESIUM) (TABLETS) [Concomitant]
  16. PRILOSEC [Concomitant]
  17. LEVOTHYROXINE SODIUM (LEVOTHYROXINE SODIUM) (TABLETS) [Concomitant]
  18. LIPITOR [Concomitant]
  19. COUMADIN [Concomitant]
  20. OXYCONTIN (OXYCODONE HYDROCHLORIDE) (20 MILLIGRAM) [Concomitant]
  21. LEVAQUIN [Concomitant]
  22. OXYCONTIN (OXYCODONE HYDROCHLORIDE) (40 MILLIGRAM) [Concomitant]
  23. VENTOLIN [Concomitant]
  24. SURFAK (DOCUSATE SODIUM) [Concomitant]
  25. GUAIFENESIN (GUAIFENESIN) (600 MILLIGRAM) [Concomitant]
  26. HYDROCODONE (HYDROCODONE) [Concomitant]
  27. OXYCODONE HCL [Concomitant]
  28. ZYRTEC [Concomitant]

REACTIONS (1)
  - HIP FRACTURE [None]
